FAERS Safety Report 8960217 (Version 1)
Quarter: 2012Q4

REPORT INFORMATION
  Report Type: Report from Study
  Country: US (occurrence: US)
  Receive Date: 20121212
  Receipt Date: 20121212
  Transmission Date: 20130627
  Serious: Yes (Other)
  Sender: FDA-Public Use
  Company Number: US-JNJFOC-20121202875

PATIENT
  Sex: Female

DRUGS (1)
  1. REMICADE [Suspect]
     Indication: COLITIS ULCERATIVE
     Dosage: 3 infusions on unspecified dates
     Route: 042

REACTIONS (3)
  - Fistula [Recovered/Resolved]
  - Surgery [Unknown]
  - Drug ineffective [Unknown]
